FAERS Safety Report 8922890 (Version 2)
Quarter: 2012Q4

REPORT INFORMATION
  Report Type: 
  Country: JP (occurrence: JP)
  Receive Date: 20121123
  Receipt Date: 20121123
  Transmission Date: 20130627
  Serious: Yes (Other)
  Sender: FDA-Public Use
  Company Number: JP-JNJFOC-20121108191

PATIENT
  Age: 62 Year
  Sex: Male

DRUGS (4)
  1. DOXORUBICIN HYDROCHLORIDE [Suspect]
     Indication: MALIGNANT FIBROUS HISTIOCYTOMA
     Dosage: 135 mg, 4 times, 4 courses before and after wide resection of thigh
     Route: 042
  2. DOXORUBICIN HYDROCHLORIDE [Suspect]
     Indication: MALIGNANT FIBROUS HISTIOCYTOMA
     Dosage: 135 mg, 4 times, 4 courses before and after wide resection of thigh
     Route: 065
  3. IFOSFAMIDE [Suspect]
     Indication: MALIGNANT FIBROUS HISTIOCYTOMA
     Dosage: 20 g three times and 17.5 g once, 4 courses before and after wide resection of thigh
     Route: 065
  4. RADIOTHERAPY [Suspect]
     Indication: MALIGNANT FIBROUS HISTIOCYTOMA
     Dosage: total dose: 63 Gy
     Route: 065
     Dates: start: 200007

REACTIONS (2)
  - Sweat gland tumour [Recovered/Resolved]
  - Off label use [Unknown]
